FAERS Safety Report 17939956 (Version 1)
Quarter: 2020Q2

REPORT INFORMATION
  Report Type: Spontaneous
  Country: BE (occurrence: BE)
  Receive Date: 20200625
  Receipt Date: 20200625
  Transmission Date: 20200714
  Serious: Yes (Other)
  Sender: FDA-Public Use
  Company Number: BE-SA-2020SA151404

PATIENT

DRUGS (1)
  1. LEMTRADA [Suspect]
     Active Substance: ALEMTUZUMAB
     Route: 065

REACTIONS (4)
  - Central nervous system lesion [Unknown]
  - Thrombocytopenia [Unknown]
  - Cauda equina syndrome [Unknown]
  - Hyperthyroidism [Unknown]
